FAERS Safety Report 5784879-7 (Version None)
Quarter: 2008Q2

REPORT INFORMATION
  Report Type: 
  Country: None (occurrence: None)
  Receive Date: 20080605
  Receipt Date: 20080416
  Transmission Date: 20081010
  Serious: No
  Sender: FDA-Public Use
  Company Number: A0723065A

PATIENT
  Age: 63 Year
  Sex: Female
  Weight: 63 kg

DRUGS (2)
  1. ALLI [Suspect]
  2. MULTI-VITAMIN [Concomitant]

REACTIONS (4)
  - DRUG INEFFECTIVE [None]
  - FEELING ABNORMAL [None]
  - FLATULENCE [None]
  - SENSATION OF FOREIGN BODY [None]
